FAERS Safety Report 17518948 (Version 2)
Quarter: 2020Q1

REPORT INFORMATION
  Report Type: Report from Study
  Country: GB (occurrence: GB)
  Receive Date: 20200310
  Receipt Date: 20200311
  Transmission Date: 20200409
  Serious: No
  Sender: FDA-Public Use
  Company Number: GB-ROCHE-2401578

PATIENT
  Age: 40 Year
  Sex: Female

DRUGS (7)
  1. CHLORPHENAMINE [Concomitant]
     Active Substance: CHLORPHENIRAMINE MALEATE
     Dosage: ONCE?BEFORE?INFUSION
     Route: 042
     Dates: start: 20190911, end: 20190911
  2. PARACETAMOL [Concomitant]
     Active Substance: ACETAMINOPHEN
     Route: 048
     Dates: start: 20190911, end: 20190911
  3. OCREVUS [Suspect]
     Active Substance: OCRELIZUMAB
     Indication: MULTIPLE SCLEROSIS
     Route: 042
  4. PARACETAMOL [Concomitant]
     Active Substance: ACETAMINOPHEN
     Dosage: ONCE?BEFORE?INFUSION
     Route: 048
     Dates: start: 20190828, end: 20190828
  5. METHYLPREDNISOLONE. [Concomitant]
     Active Substance: METHYLPREDNISOLONE
     Dosage: ONCE?BEFORE?INFUSION
     Route: 042
     Dates: start: 20190828, end: 20190828
  6. METHYLPREDNISOLONE. [Concomitant]
     Active Substance: METHYLPREDNISOLONE
     Dosage: ONCE?BEFORE?INFUSION
     Route: 042
     Dates: start: 20190911, end: 20190911
  7. CHLORPHENAMINE [Concomitant]
     Active Substance: CHLORPHENIRAMINE MALEATE
     Dosage: ONCE?BEFORE?INFUSION
     Route: 042
     Dates: start: 20190828, end: 20190828

REACTIONS (3)
  - Oral herpes [Not Recovered/Not Resolved]
  - Infusion related reaction [Recovered/Resolved]
  - Dyspepsia [Recovered/Resolved]

NARRATIVE: CASE EVENT DATE: 20190828
